FAERS Safety Report 16904685 (Version 1)
Quarter: 2019Q4

REPORT INFORMATION
  Report Type: Spontaneous
  Country: GB (occurrence: GB)
  Receive Date: 20191010
  Receipt Date: 20191010
  Transmission Date: 20200122
  Serious: Yes (Other)
  Sender: FDA-Public Use
  Company Number: GB-MYLANLABS-2019M1094774

PATIENT
  Age: 90 Year
  Sex: Female
  Weight: 76 kg

DRUGS (21)
  1. GLYCERYL TRINITRATE [Concomitant]
     Active Substance: NITROGLYCERIN
     Dosage: SPRAY ONE OR TWO DOSES UNDER TONGUE AND THEN CL...
     Route: 060
     Dates: start: 20190429, end: 20190527
  2. VERAPAMIL HYDROCHLORIDE. [Concomitant]
     Active Substance: VERAPAMIL HYDROCHLORIDE
     Dosage: IN THE MORNING AND ONE AT LUNCHTIME,  AS DI...
     Dates: start: 20181207
  3. PARACETAMOL [Concomitant]
     Active Substance: ACETAMINOPHEN
     Dosage: 1 -2 FOUR TIMES A DAY
     Dates: start: 20180907
  4. CARMELLOSE [Concomitant]
     Dosage: HOURLY AS DIRECTED
     Dates: start: 20190215
  5. OMEPRAZOLE. [Concomitant]
     Active Substance: OMEPRAZOLE
     Dosage: 1 DOSAGE FORM, QD
     Dates: start: 20190524
  6. CARBOMER [Concomitant]
     Active Substance: CARBOMER
     Dosage: (ONE VIAL PER DAY, TO BE KEPT IN FRI...
     Dates: start: 20190204
  7. TERBINAFINE. [Concomitant]
     Active Substance: TERBINAFINE
     Dosage: APPLY TWICE A DAY BENEATH BOTH BREASTS
     Dates: start: 20190502
  8. ESOMEPRAZOLE. [Suspect]
     Active Substance: ESOMEPRAZOLE MAGNESIUM
     Indication: PRODUCT USED FOR UNKNOWN INDICATION
     Dates: start: 20190528
  9. FUROSEMIDE. [Concomitant]
     Active Substance: FUROSEMIDE
     Dosage: 20MG ONE DAY AND 40 MG NEXT DAY ALTERNATING TAK...
     Dates: start: 20181207
  10. ATORVASTATIN [Concomitant]
     Active Substance: ATORVASTATIN
     Dosage: AT NIGHT
     Dates: start: 20181207
  11. PERMETHRIN. [Concomitant]
     Active Substance: PERMETHRIN
     Dosage: TO BE USED AS DIRECTED
     Dates: start: 20190307, end: 20190419
  12. IBUPROFEN. [Concomitant]
     Active Substance: IBUPROFEN
     Dosage: APPLY
     Dates: start: 20180907
  13. COCODAMOL [Concomitant]
     Active Substance: ACETAMINOPHEN\CODEINE PHOSPHATE
     Dosage: TAKE 1 OR 2 4 TIMES/DAY
     Dates: start: 20190524
  14. RIVAROXABAN [Concomitant]
     Active Substance: RIVAROXABAN
     Dosage: 1 DOSAGE FORM, QD
     Dates: start: 20181207
  15. LACTULOSE. [Concomitant]
     Active Substance: LACTULOSE
     Dosage: 20 MILLILITER, QD
     Dates: start: 20180907
  16. DOUBLEBASE [Concomitant]
     Active Substance: ISOPROPYL MYRISTATE\PARAFFIN
     Dosage: APPLY LIBERALLY TWICE A DAY ACROSS WHOLE BODY
     Route: 061
     Dates: start: 20190502
  17. ACCRETE D3 [Concomitant]
     Active Substance: CALCIUM CARBONATE\CHOLECALCIFEROL
     Dosage: 2 DOSAGE FORM, QD
     Dates: start: 20190130
  18. CODEINE PHOSPHATE [Concomitant]
     Active Substance: CODEINE PHOSPHATE
     Dosage: AT NIGHT
     Dates: start: 20190212
  19. FOLIC ACID. [Concomitant]
     Active Substance: FOLIC ACID
     Dosage: 1 DOSAGE FORM, QD
     Dates: start: 20181207
  20. HYDROCORTISONE. [Concomitant]
     Active Substance: HYDROCORTISONE
     Dosage: APPLY TWICE A DAY TO AFFECTED AREAS
     Route: 061
     Dates: start: 20190502
  21. ETORICOXIB. [Concomitant]
     Active Substance: ETORICOXIB
     Dosage: 1 DOSAGE FORM, QD
     Dates: start: 20190524

REACTIONS (2)
  - Lip swelling [Recovered/Resolved]
  - Hypersensitivity [Recovered/Resolved]

NARRATIVE: CASE EVENT DATE: 20190528
